FAERS Safety Report 4900430-5 (Version None)
Quarter: 2006Q1

REPORT INFORMATION
  Report Type: 
  Country: None (occurrence: None)
  Receive Date: 20060201
  Receipt Date: 20060119
  Transmission Date: 20060701
  Serious: Yes (Death)
  Sender: FDA-Public Use
  Company Number: S05-USA-03889-02

PATIENT
  Age: 4 Month
  Sex: Male
  Weight: 7.7111 kg

DRUGS (5)
  1. LEXAPRO [Suspect]
     Indication: DEPRESSION
     Dosage: 10 MG QD TRANSPLACENTAL
     Route: 064
     Dates: start: 20040927, end: 20041103
  2. LEXAPRO [Suspect]
     Indication: DEPRESSION
     Dosage: 20 MG QD TRANSPLACENTAL
     Route: 064
     Dates: start: 20041104, end: 20050301
  3. LEXAPRO [Suspect]
     Indication: DEPRESSION
     Dosage: 20 MG QD BF
     Dates: start: 20050301, end: 20050401
  4. ZOFRAN [Concomitant]
  5. BENADRYL [Concomitant]

REACTIONS (13)
  - DRUG EXPOSURE DURING PREGNANCY [None]
  - GASTROINTESTINAL DISORDER [None]
  - HILAR LYMPHADENOPATHY [None]
  - LABORATORY TEST INTERFERENCE [None]
  - LYMPHADENOPATHY [None]
  - MATERNAL CONDITION AFFECTING FOETUS [None]
  - NEONATAL DISORDER [None]
  - OEDEMA [None]
  - PULMONARY CONGESTION [None]
  - PULMONARY HAEMORRHAGE [None]
  - RESPIRATORY DISORDER NEONATAL [None]
  - SKIN DISCOLOURATION [None]
  - SUDDEN INFANT DEATH SYNDROME [None]
